FAERS Safety Report 4812669-8 (Version None)
Quarter: 2005Q4

REPORT INFORMATION
  Report Type: 
  Country: None (occurrence: None)
  Receive Date: 20051028
  Receipt Date: 20041105
  Transmission Date: 20060501
  Serious: No
  Sender: FDA-Public Use
  Company Number: US-GLAXOSMITHKLINE-A0532834A

PATIENT
  Age: 75 Year
  Sex: Female

DRUGS (7)
  1. ADVAIR DISKUS 100/50 [Suspect]
     Indication: CHRONIC OBSTRUCTIVE PULMONARY DISEASE
     Dosage: 250MCG PER DAY
     Route: 055
     Dates: start: 20040925, end: 20041015
  2. VENTOLIN [Concomitant]
  3. ATROVENT [Concomitant]
  4. CARDIZEM [Concomitant]
  5. SYNTHROID [Concomitant]
  6. NEXIUM [Concomitant]
  7. RENAGEL [Concomitant]

REACTIONS (2)
  - CANDIDIASIS [None]
  - DYSPHONIA [None]
